FAERS Safety Report 5382630-6 (Version None)
Quarter: 2007Q3

REPORT INFORMATION
  Report Type: 
  Country: None (occurrence: None)
  Receive Date: 20070710
  Receipt Date: 20070709
  Transmission Date: 20080115
  Serious: Yes (Life-Threatening, Hospitalization, Other)
  Sender: FDA-Public Use
  Company Number: DE-BRISTOL-MYERS SQUIBB COMPANY-13839048

PATIENT
  Age: 41 Year
  Sex: Female
  Weight: 76 kg

DRUGS (5)
  1. CYCLOPHOSPHAMIDE [Suspect]
     Indication: BREAST CANCER
     Route: 042
  2. TAXOL [Suspect]
     Indication: BREAST CANCER
     Route: 042
     Dates: start: 20070629
  3. EPIRUBICIN [Suspect]
     Indication: BREAST CANCER
     Route: 042
  4. NEULASTA [Suspect]
     Indication: LEUKOPENIA
     Route: 058
     Dates: start: 20070630, end: 20070630
  5. ARANESP [Concomitant]
     Route: 058
     Dates: start: 20070518

REACTIONS (2)
  - ARTHRALGIA [None]
  - BACK PAIN [None]
